FAERS Safety Report 5887326-X (Version None)
Quarter: 2008Q3

REPORT INFORMATION
  Report Type: 
  Country: None (occurrence: None)
  Receive Date: 20080915
  Receipt Date: 20080905
  Transmission Date: 20090109
  Serious: Yes (Other)
  Sender: FDA-Public Use
  Company Number: 2008AP002303

PATIENT
  Age: 72 Year
  Sex: Male

DRUGS (1)
  1. CLARITHROMYCIN [Suspect]
     Indication: BRONCHITIS
     Dosage: 500 MG;BID;PO
     Route: 048
     Dates: start: 20080713, end: 20080723

REACTIONS (1)
  - BLOOD URINE PRESENT [None]
